FAERS Safety Report 6398835-1 (Version None)
Quarter: 2009Q4

REPORT INFORMATION
  Report Type: 
  Country: None (occurrence: None)
  Receive Date: 20091013
  Receipt Date: 20091006
  Transmission Date: 20100525
  Serious: Yes (Death)
  Sender: FDA-Public Use
  Company Number: DE-CELGENEUS-062-21880-09100004

PATIENT
  Sex: Male

DRUGS (12)
  1. REVLIMID [Suspect]
     Indication: MULTIPLE MYELOMA
     Route: 048
     Dates: start: 20080401
  2. REVLIMID [Suspect]
     Route: 048
     Dates: start: 20090801
  3. TORSEMIDE [Concomitant]
     Indication: HYPERTENSION
  4. ALFUZOSIN HCL [Concomitant]
     Indication: DRUG USE FOR UNKNOWN INDICATION
     Route: 048
     Dates: start: 20080831, end: 20090910
  5. ACYCLOVIR [Concomitant]
     Indication: ANTIVIRAL TREATMENT
     Route: 048
     Dates: start: 20080831, end: 20090910
  6. RAMIPRIL [Concomitant]
     Indication: HYPERTENSION
     Route: 065
  7. VOLTAREN [Concomitant]
     Indication: BONE PAIN
     Route: 065
  8. TEPILTA [Concomitant]
  9. PANTOPRAZOLE SODIUM [Concomitant]
     Route: 065
  10. ACETYLSALICYLIC ACID [Concomitant]
     Indication: DRUG USE FOR UNKNOWN INDICATION
     Route: 065
  11. COTRIM [Concomitant]
     Route: 065
     Dates: start: 20090801
  12. CEFUROXIME [Concomitant]
     Route: 065

REACTIONS (2)
  - MULTIPLE MYELOMA [None]
  - PNEUMONIA PRIMARY ATYPICAL [None]
